FAERS Safety Report 5691719-3 (Version None)
Quarter: 2008Q2

REPORT INFORMATION
  Report Type: 
  Country: None (occurrence: None)
  Receive Date: 20080402
  Receipt Date: 20080325
  Transmission Date: 20081010
  Serious: Yes (Hospitalization, Disabling)
  Sender: FDA-Public Use
  Company Number: DE-TEVA-168316ISR

PATIENT
  Sex: Female

DRUGS (4)
  1. LISINOPRIL AND HYDROCHLOROTHIAZIDE [Suspect]
     Indication: HYPERTENSION
     Dosage: 20/12.5 MG
     Route: 048
     Dates: start: 20071201, end: 20080201
  2. CARRE 25 [Concomitant]
     Route: 048
  3. FUROSEMIDE [Concomitant]
     Route: 048
  4. OXAZEPAM [Concomitant]
     Route: 048

REACTIONS (6)
  - ASTHENIA [None]
  - BLOOD CREATININE INCREASED [None]
  - CIRCULATORY COLLAPSE [None]
  - DEHYDRATION [None]
  - DIARRHOEA [None]
  - DYSPHAGIA [None]
